FAERS Safety Report 5510921-4 (Version None)
Quarter: 2007Q4

REPORT INFORMATION
  Report Type: 
  Country: None (occurrence: None)
  Receive Date: 20071106
  Receipt Date: 20071106
  Transmission Date: 20080405
  Serious: Yes (Life-Threatening, Disabling, Other)
  Sender: FDA-Public Use
  Company Number: None

PATIENT
  Age: 46 Year
  Sex: Female
  Weight: 77.1115 kg

DRUGS (2)
  1. CYMBALTA [Suspect]
     Indication: ACTIVITIES OF DAILY LIVING IMPAIRED
     Dosage: 60 MG QD PO
     Route: 048
     Dates: start: 20060605, end: 20060616
  2. CYMBALTA [Suspect]
     Indication: FATIGUE
     Dosage: 60 MG QD PO
     Route: 048
     Dates: start: 20060605, end: 20060616

REACTIONS (28)
  - ABDOMINAL DISTENSION [None]
  - ARTHRALGIA [None]
  - ASTHENIA [None]
  - BLOOD CHOLESTEROL INCREASED [None]
  - BLOOD TRIGLYCERIDES INCREASED [None]
  - CHEST PAIN [None]
  - COMMUNICATION DISORDER [None]
  - CONDITION AGGRAVATED [None]
  - DIABETES MELLITUS [None]
  - DYSPNOEA [None]
  - FATIGUE [None]
  - GAIT DISTURBANCE [None]
  - GALLBLADDER DISORDER [None]
  - GENERAL PHYSICAL HEALTH DETERIORATION [None]
  - GENERALISED OEDEMA [None]
  - HEART RATE INCREASED [None]
  - HEART RATE IRREGULAR [None]
  - IMMUNE SYSTEM DISORDER [None]
  - INFLAMMATION [None]
  - LYME DISEASE [None]
  - MALAISE [None]
  - NEOPLASM MALIGNANT [None]
  - NERVOUS SYSTEM DISORDER [None]
  - PITTING OEDEMA [None]
  - SPEECH DISORDER [None]
  - STUPOR [None]
  - WEIGHT INCREASED [None]
  - WHEEZING [None]
